FAERS Safety Report 11103032 (Version 2)
Quarter: 2015Q2

REPORT INFORMATION
  Report Type: Spontaneous
  Country: JP (occurrence: JP)
  Receive Date: 20150511
  Receipt Date: 20150518
  Transmission Date: 20150821
  Serious: Yes (Other)
  Sender: FDA-Public Use
  Company Number: JP-PFIZER INC-2015157657

PATIENT
  Age: 37 Year
  Sex: Male

DRUGS (1)
  1. CHAMPIX [Suspect]
     Active Substance: VARENICLINE TARTRATE
     Dosage: UNK
     Route: 048
     Dates: start: 201412

REACTIONS (1)
  - Fracture [Unknown]

NARRATIVE: CASE EVENT DATE: 2015
